FAERS Safety Report 11500475 (Version 1)
Quarter: 2015Q3

REPORT INFORMATION
  Report Type: Spontaneous
  Country: US (occurrence: None)
  Receive Date: 20150910
  Receipt Date: 20150910
  Transmission Date: 20151125
  Serious: Yes (Life-Threatening)
  Sender: FDA-Public Use
  Company Number: 2014-PEL-000304

PATIENT
  Age: 2 Month
  Sex: Female
  Weight: 5 kg

DRUGS (16)
  1. CEFAZOLIN [Concomitant]
     Active Substance: CEFAZOLIN
  2. DANTROLONE [Concomitant]
  3. DIGOXIN. [Concomitant]
     Active Substance: DIGOXIN
  4. SODIUM BICARBONATE. [Concomitant]
     Active Substance: SODIUM BICARBONATE
  5. ISOFLURANE. [Suspect]
     Active Substance: ISOFLURANE
  6. MILIRONONE [Concomitant]
  7. HEPARIN [Concomitant]
     Active Substance: HEPARIN SODIUM
  8. MAGNESIUM SULPHATE [Concomitant]
     Active Substance: MAGNESIUM SULFATE
  9. CALCIUM CHLORIDE. [Concomitant]
     Active Substance: CALCIUM CHLORIDE
  10. SEVOFLURANE. [Suspect]
     Active Substance: SEVOFLURANE
     Indication: INDUCTION OF ANAESTHESIA
  11. METHYLPREDNISOLONE. [Concomitant]
     Active Substance: METHYLPREDNISOLONE
  12. PROTAMINE [Concomitant]
     Active Substance: PROTAMINE
  13. FENTANYL. [Suspect]
     Active Substance: FENTANYL
  14. ROCURONIUM [Suspect]
     Active Substance: ROCURONIUM BROMIDE
  15. ENALAPRIL [Concomitant]
     Active Substance: ENALAPRIL
  16. PANCURONIUM [Suspect]
     Active Substance: PANCURONIUM

REACTIONS (5)
  - Respiratory acidosis [None]
  - Hypoxia [None]
  - Hyperthermia malignant [None]
  - Post procedural complication [None]
  - Metabolic acidosis [None]
